FAERS Safety Report 10232441 (Version 1)
Quarter: 2014Q2

REPORT INFORMATION
  Report Type: Report from Study
  Country: US (occurrence: US)
  Receive Date: 20140612
  Receipt Date: 20140612
  Transmission Date: 20141212
  Serious: Yes (Other)
  Sender: FDA-Public Use
  Company Number: PHEH2014US011792

PATIENT
  Sex: Female

DRUGS (2)
  1. EXFORGE [Suspect]
     Indication: HYPERTENSION
     Dosage: 1 DF, (160 M VALS AND 5 MG AMLO)
     Route: 048
  2. EXFORGE [Suspect]
     Indication: HYPERLIPIDAEMIA

REACTIONS (1)
  - Deafness [Unknown]
